FAERS Safety Report 8505898-3 (Version None)
Quarter: 2012Q3

REPORT INFORMATION
  Report Type: 
  Country: None (occurrence: None)
  Receive Date: 20120712
  Receipt Date: 20120628
  Transmission Date: 20120928
  Serious: Yes (Death)
  Sender: FDA-Public Use
  Company Number: JP-CELGENEUS-087-50794-12071077

PATIENT
  Sex: Male

DRUGS (17)
  1. LASIX [Concomitant]
     Route: 065
  2. LAC-B [Concomitant]
     Route: 065
     Dates: start: 20111109
  3. ALLOPURINOL [Concomitant]
     Route: 065
  4. BISMUTH [Concomitant]
     Route: 065
     Dates: start: 20111113
  5. JUSO [Concomitant]
     Route: 065
  6. LOPERAMIDE HYDROCHLORIDE [Concomitant]
     Route: 065
     Dates: start: 20111122
  7. CEFAZOLIN SODIUM [Concomitant]
     Route: 065
     Dates: start: 20111113
  8. SELBEX [Concomitant]
     Route: 065
  9. GARENOXACIN MESYLATE [Concomitant]
     Route: 065
  10. ZOSYN [Concomitant]
     Route: 065
     Dates: start: 20111114
  11. ALBUMIN TANNATE [Concomitant]
     Route: 065
     Dates: start: 20111113
  12. VIDAZA [Suspect]
     Dosage: 75 MILLIGRAM/SQ. METER
     Route: 041
     Dates: start: 20111207, end: 20111213
  13. ITRACONAZOLE [Concomitant]
     Route: 065
  14. BEZATATE [Concomitant]
     Route: 065
  15. RABEPRAZOLE SODIUM [Concomitant]
     Route: 065
  16. LENDORMIN [Concomitant]
     Route: 065
  17. VIDAZA [Suspect]
     Dosage: 75 MILLIGRAM/SQ. METER
     Route: 041
     Dates: start: 20111101, end: 20111107

REACTIONS (1)
  - DISEASE PROGRESSION [None]
